FAERS Safety Report 5234533-5 (Version None)
Quarter: 2007Q1

REPORT INFORMATION
  Report Type: 
  Country: None (occurrence: None)
  Receive Date: 20070209
  Receipt Date: 20070129
  Transmission Date: 20070707
  Serious: Yes (Hospitalization)
  Sender: FDA-Public Use
  Company Number: US-ELI_LILLY_AND_COMPANY-US200610003564

PATIENT
  Age: 46 Year
  Sex: Female
  Weight: 63.492 kg

DRUGS (8)
  1. SYNTHROID [Concomitant]
  2. CREON [Concomitant]
  3. MS CONTIN [Concomitant]
  4. PROTONIX [Concomitant]
  5. FIORICET [Concomitant]
  6. LOMOTIL [Concomitant]
  7. CYMBALTA [Suspect]
     Indication: DEPRESSION
     Dosage: 20 MG, 2/D
     Route: 048
     Dates: start: 20060727, end: 20060923
  8. CYMBALTA [Suspect]
     Dosage: 20 MG, UNK
     Dates: start: 20060926, end: 20060928

REACTIONS (8)
  - ABDOMINAL PAIN [None]
  - ALANINE AMINOTRANSFERASE INCREASED [None]
  - ANOREXIA [None]
  - ASPARTATE AMINOTRANSFERASE INCREASED [None]
  - DEHYDRATION [None]
  - FATIGUE [None]
  - NAUSEA [None]
  - VOMITING [None]
